FAERS Safety Report 10732762 (Version 2)
Quarter: 2015Q1

REPORT INFORMATION
  Report Type: Spontaneous
  Country: US (occurrence: US)
  Receive Date: 20150123
  Receipt Date: 20150303
  Transmission Date: 20150721
  Serious: Yes (Disabling, Other)
  Sender: FDA-Public Use
  Company Number: US-CELGENE-USA-2014110501

PATIENT
  Age: 66 Year
  Sex: Female
  Weight: 67.6 kg

DRUGS (3)
  1. REVLIMID [Suspect]
     Active Substance: LENALIDOMIDE
     Route: 048
     Dates: start: 201212
  2. REVLIMID [Suspect]
     Active Substance: LENALIDOMIDE
     Indication: MYELODYSPLASTIC SYNDROME
     Route: 048
     Dates: start: 20121128
  3. ASPIRIN. [Concomitant]
     Active Substance: ASPIRIN
     Indication: PRODUCT USED FOR UNKNOWN INDICATION
     Route: 065

REACTIONS (11)
  - Dizziness [Unknown]
  - Rash pruritic [Unknown]
  - Headache [Unknown]
  - Confusional state [Not Recovered/Not Resolved]
  - Drug dose omission [Unknown]
  - Muscle spasms [Unknown]
  - Blood sodium decreased [Unknown]
  - Oral disorder [Unknown]
  - Vomiting [Unknown]
  - Squamous cell carcinoma of skin [Unknown]
  - Nausea [Unknown]

NARRATIVE: CASE EVENT DATE: 2014
